FAERS Safety Report 6786525-2 (Version None)
Quarter: 2010Q2

REPORT INFORMATION
  Report Type: 
  Country: None (occurrence: None)
  Receive Date: 20100623
  Receipt Date: 20100615
  Transmission Date: 20101027
  Serious: Yes (Hospitalization)
  Sender: FDA-Public Use
  Company Number: B0661615A

PATIENT
  Sex: Female

DRUGS (3)
  1. ALLI [Suspect]
     Indication: OBESITY
     Route: 048
     Dates: start: 20100315, end: 20100101
  2. CERAZETTE [Concomitant]
     Indication: CONTRACEPTION
     Dates: start: 20100101
  3. MULTI-VITAMINS [Concomitant]

REACTIONS (7)
  - ABDOMINAL PAIN UPPER [None]
  - BACK PAIN [None]
  - CHROMATURIA [None]
  - DIARRHOEA [None]
  - FATIGUE [None]
  - IRON DEFICIENCY ANAEMIA [None]
  - NECK PAIN [None]
